FAERS Safety Report 13373976 (Version 1)
Quarter: 2017Q1

REPORT INFORMATION
  Report Type: Spontaneous
  Country: IT (occurrence: IT)
  Receive Date: 20170327
  Receipt Date: 20170327
  Transmission Date: 20170429
  Serious: Yes (Hospitalization)
  Sender: FDA-Public Use
  Company Number: IT-SA-2017SA046229

PATIENT
  Age: 73 Year
  Sex: Female

DRUGS (2)
  1. PLAVIX [Suspect]
     Active Substance: CLOPIDOGREL BISULFATE
     Route: 048
  2. SELEPARINA [Suspect]
     Active Substance: NADROPARIN CALCIUM
     Dosage: DOSE:0.3 UNIT(S)
     Route: 058

REACTIONS (4)
  - Fall [Unknown]
  - Head injury [Unknown]
  - Periorbital haematoma [Unknown]
  - Aphasia [Unknown]

NARRATIVE: CASE EVENT DATE: 20161122
